FAERS Safety Report 24768607 (Version 2)
Quarter: 2025Q1

REPORT INFORMATION
  Report Type: Report from Study
  Country: US (occurrence: US)
  Receive Date: 20241224
  Receipt Date: 20250326
  Transmission Date: 20250409
  Serious: Yes (Other)
  Sender: JOHNSON AND JOHNSON
  Company Number: US-JNJFOC-20241253201

PATIENT
  Age: 45 Year
  Sex: Female
  Weight: 149.69 kg

DRUGS (10)
  1. SPRAVATO [Suspect]
     Active Substance: ESKETAMINE
     Indication: Depression
     Route: 045
     Dates: start: 20230329, end: 20241125
  2. SPRAVATO [Suspect]
     Active Substance: ESKETAMINE
     Indication: Major depression
     Route: 045
     Dates: start: 20230321, end: 20230323
  3. SPRAVATO [Suspect]
     Active Substance: ESKETAMINE
     Dosage: ?84 MG, 1 TOTAL DOSES?
     Route: 045
     Dates: start: 20241217, end: 20241217
  4. CARVEDILOL [Suspect]
     Active Substance: CARVEDILOL
     Indication: Hypertension
     Route: 048
     Dates: start: 202401
  5. IRBESARTAN [Suspect]
     Active Substance: IRBESARTAN
     Indication: Hypertension
     Route: 048
     Dates: start: 2023
  6. VERAPAMIL [Concomitant]
     Active Substance: VERAPAMIL HYDROCHLORIDE
     Indication: Hypertension
     Dosage: VERAPAMIL ER, ONGOING
     Route: 048
     Dates: start: 202111
  7. ACETAMINOPHEN\HYDROCODONE [Concomitant]
     Active Substance: ACETAMINOPHEN\HYDROCODONE
     Indication: Pain
     Route: 048
     Dates: start: 2022
  8. MEMANTINE [Concomitant]
     Active Substance: MEMANTINE
     Indication: Cognitive disorder
     Dosage: ONGOING
     Route: 048
     Dates: start: 2021
  9. DESVENLAFAXINE [Concomitant]
     Active Substance: DESVENLAFAXINE
     Indication: Depression
     Route: 048
     Dates: start: 2022
  10. DEPAKOTE [Concomitant]
     Active Substance: DIVALPROEX SODIUM
     Indication: Depression
     Route: 048
     Dates: start: 202309

REACTIONS (1)
  - Hypotension [Recovered/Resolved]

NARRATIVE: CASE EVENT DATE: 20241217
